FAERS Safety Report 14822597 (Version 4)
Quarter: 2019Q3

REPORT INFORMATION
  Report Type: Report from Study
  Country: TW (occurrence: TW)
  Receive Date: 20180427
  Receipt Date: 20190926
  Transmission Date: 20191004
  Serious: Yes (Other)
  Sender: FDA-Public Use
  Company Number: PHHY2018TW074518

PATIENT
  Age: 90 Year
  Sex: Female

DRUGS (186)
  1. VALSARTAN. [Concomitant]
     Active Substance: VALSARTAN
     Dosage: 160 MG, UNK
     Route: 048
     Dates: end: 20160406
  2. AMLODIPINE BESYLATE. [Concomitant]
     Active Substance: AMLODIPINE BESYLATE
     Indication: HYPERTENSION
     Dosage: 5 MG, UNK
     Route: 048
     Dates: start: 20171015, end: 20171015
  3. AMLODIPINE BESYLATE. [Concomitant]
     Active Substance: AMLODIPINE BESYLATE
     Dosage: 5 MG, UNK
     Route: 048
     Dates: start: 20171113, end: 20171117
  4. BISACODYL. [Concomitant]
     Active Substance: BISACODYL
     Dosage: 20 MG, UNK
     Route: 054
     Dates: start: 20171130, end: 20171130
  5. BISACODYL. [Concomitant]
     Active Substance: BISACODYL
     Dosage: 20 MG, UNK
     Route: 054
     Dates: start: 20171209, end: 20171209
  6. CAPTOPRIL. [Concomitant]
     Active Substance: CAPTOPRIL
     Dosage: 12.5 MG, UNK
     Route: 048
     Dates: start: 20171113, end: 20171117
  7. CAPTOPRIL. [Concomitant]
     Active Substance: CAPTOPRIL
     Dosage: 12.5 MG, UNK
     Route: 048
     Dates: start: 20171117, end: 20171123
  8. ESTAZOLAM. [Concomitant]
     Active Substance: ESTAZOLAM
     Dosage: 2 MG, UNK
     Route: 048
     Dates: start: 20171106, end: 20171112
  9. FUROSEMIDE. [Concomitant]
     Active Substance: FUROSEMIDE
     Dosage: 20 MG, UNK,
     Route: 042
     Dates: start: 20171015, end: 20171015
  10. HEPARIN [Concomitant]
     Active Substance: HEPARIN SODIUM
     Indication: PROPHYLAXIS
     Dosage: 5 ML, UNK
     Route: 042
     Dates: start: 20171020, end: 20171020
  11. INSULIN DETEMIR [Concomitant]
     Active Substance: INSULIN DETEMIR
     Dosage: 7 U, UNK
     Route: 058
     Dates: start: 20171021, end: 20171021
  12. ISOSORBIDE-5-MONONITRATE [Concomitant]
     Active Substance: ISOSORBIDE MONONITRATE
     Dosage: 20 MG, UNK
     Route: 048
     Dates: start: 20171205, end: 20171211
  13. NICORANDIL [Concomitant]
     Active Substance: NICORANDIL
     Dosage: 5 MG, UNK
     Route: 048
     Dates: start: 20171117, end: 20171123
  14. NICORANDIL [Concomitant]
     Active Substance: NICORANDIL
     Dosage: 5 MG, UNK
     Route: 048
     Dates: start: 20171129, end: 20171205
  15. INSULIN [Concomitant]
     Active Substance: INSULIN NOS
     Dosage: 8 U, UNK
     Route: 058
     Dates: start: 20171120, end: 20171122
  16. REPAGLINIDE. [Concomitant]
     Active Substance: REPAGLINIDE
     Indication: TYPE 2 DIABETES MELLITUS
     Dosage: 0.5 MG, UNK
     Route: 048
     Dates: start: 20171201, end: 20171201
  17. SENNOSIDE [Concomitant]
     Active Substance: SENNOSIDES
     Dosage: 40 MG, UNK
     Route: 048
     Dates: start: 20171205, end: 20171211
  18. SODIUM CHLORIDE. [Concomitant]
     Active Substance: SODIUM CHLORIDE
     Dosage: 500 ML, UNK
     Route: 042
     Dates: start: 20171029, end: 20171104
  19. SODIUM CHLORIDE. [Concomitant]
     Active Substance: SODIUM CHLORIDE
     Dosage: 500 ML, UNK
     Route: 042
     Dates: start: 20171210, end: 20171210
  20. SODIUM CHLORIDE. [Concomitant]
     Active Substance: SODIUM CHLORIDE
     Dosage: 500 ML, UNK
     Route: 042
     Dates: start: 20171210, end: 20171211
  21. TRAZODONE [Concomitant]
     Active Substance: TRAZODONE HYDROCHLORIDE
     Dosage: 50 MG, UNK
     Route: 048
     Dates: start: 20171205, end: 20171211
  22. TRICHLORMETHIAZIDE [Concomitant]
     Active Substance: TRICHLORMETHIAZIDE
     Indication: HYPERTENSION
     Dosage: 2 MG, UNK
     Route: 048
     Dates: start: 20171012, end: 20171012
  23. SPIRONOLACTONE. [Concomitant]
     Active Substance: SPIRONOLACTONE
     Indication: HYPERTENSION
     Dosage: 25 MG, UNK
     Route: 048
     Dates: start: 20160329, end: 20160329
  24. SPIRONOLACTONE. [Concomitant]
     Active Substance: SPIRONOLACTONE
     Dosage: 25 MG, UNK
     Route: 048
     Dates: start: 20160412, end: 20160414
  25. TASIGNA [Suspect]
     Active Substance: NILOTINIB
     Dosage: 300 UNK, UNK
     Route: 048
     Dates: start: 20160309, end: 20160321
  26. TASIGNA [Suspect]
     Active Substance: NILOTINIB
     Dosage: 600 UNK, UNK
     Route: 048
     Dates: start: 20160322, end: 20160501
  27. TASIGNA [Suspect]
     Active Substance: NILOTINIB
     Dosage: 450 UNK, UNK
     Route: 048
     Dates: start: 20160502, end: 20160628
  28. TASIGNA [Suspect]
     Active Substance: NILOTINIB
     Dosage: 600 UNK, UNK
     Route: 048
     Dates: start: 20160629, end: 20171211
  29. ISOSORBIDE DINITRATE. [Concomitant]
     Active Substance: ISOSORBIDE DINITRATE
     Dosage: 10 MG, UNK
     Route: 048
     Dates: end: 20160405
  30. AMLODIPINE BESYLATE. [Concomitant]
     Active Substance: AMLODIPINE BESYLATE
     Dosage: 5 MG, UNK
     Route: 048
     Dates: start: 20171117, end: 20171123
  31. AMLODIPINE BESYLATE. [Concomitant]
     Active Substance: AMLODIPINE BESYLATE
     Dosage: 5 UNK, UNK
     Route: 048
     Dates: start: 20170529, end: 20170530
  32. BISACODYL. [Concomitant]
     Active Substance: BISACODYL
     Dosage: 20 MG, UNK
     Route: 054
     Dates: start: 20171028, end: 20171028
  33. ESTAZOLAM. [Concomitant]
     Active Substance: ESTAZOLAM
     Dosage: 2 MG, UNK
     Route: 048
     Dates: start: 20171030, end: 20171106
  34. ESTAZOLAM. [Concomitant]
     Active Substance: ESTAZOLAM
     Dosage: 2 MG, UNK
     Route: 048
     Dates: start: 20160418, end: 20171206
  35. FUROSEMIDE. [Concomitant]
     Active Substance: FUROSEMIDE
     Dosage: 20 MG, UNK
     Route: 031
     Dates: start: 20160412, end: 20160412
  36. GLUCOSE [Concomitant]
     Active Substance: DEXTROSE
     Dosage: 40 ML, UNK
     Route: 042
     Dates: start: 20171210, end: 20171210
  37. INSULIN DETEMIR [Concomitant]
     Active Substance: INSULIN DETEMIR
     Indication: TYPE 2 DIABETES MELLITUS
     Dosage: 5 U, UNK
     Route: 058
     Dates: start: 20171019, end: 20171019
  38. INSULIN DETEMIR [Concomitant]
     Active Substance: INSULIN DETEMIR
     Dosage: 10 U, UNK
     Route: 058
     Dates: start: 20171020, end: 20171020
  39. INSULIN DETEMIR [Concomitant]
     Active Substance: INSULIN DETEMIR
     Dosage: 14 U, UNK
     Route: 058
     Dates: start: 20171022, end: 20171023
  40. INSULIN DETEMIR [Concomitant]
     Active Substance: INSULIN DETEMIR
     Dosage: 14 U, UNK
     Route: 058
     Dates: start: 20171024, end: 20171025
  41. INSULIN HUMAN ISOPHANE [Concomitant]
     Active Substance: INSULIN HUMAN
     Dosage: 100 IU/ML, UNK
     Route: 058
     Dates: end: 20171031
  42. ISOSORBIDE-5-MONONITRATE [Concomitant]
     Active Substance: ISOSORBIDE MONONITRATE
     Dosage: 20 MG, UNK
     Route: 048
     Dates: start: 20171123, end: 20171129
  43. METFORMIN [Concomitant]
     Active Substance: METFORMIN HYDROCHLORIDE
     Indication: TYPE 2 DIABETES MELLITUS
     Dosage: 500 MG, UNK
     Route: 048
     Dates: start: 20171130, end: 20171206
  44. NICARDIPINE [Concomitant]
     Active Substance: NICARDIPINE
     Dosage: 10 MG, UNK
     Route: 042
     Dates: start: 20171013, end: 20171013
  45. NICARDIPINE [Concomitant]
     Active Substance: NICARDIPINE
     Dosage: 1 MG,(10 MG/ 10 ML)
     Route: 042
     Dates: start: 20171015, end: 20171015
  46. INSULIN [Concomitant]
     Active Substance: INSULIN NOS
     Dosage: 4 U, UNK
     Route: 058
     Dates: start: 20171031, end: 20171105
  47. INSULIN [Concomitant]
     Active Substance: INSULIN NOS
     Dosage: 10 U, UNK
     Route: 058
     Dates: start: 20171106, end: 20171106
  48. INSULIN [Concomitant]
     Active Substance: INSULIN NOS
     Dosage: 10 U, UNK
     Route: 058
     Dates: start: 20171124, end: 20171124
  49. SODIUM CHLORIDE. [Concomitant]
     Active Substance: SODIUM CHLORIDE
     Dosage: 500 ML, UNK
     Route: 042
     Dates: start: 20171104, end: 20171110
  50. AUGMENTIN [Concomitant]
     Active Substance: AMOXICILLIN\CLAVULANATE POTASSIUM
     Indication: PRODUCTIVE COUGH
  51. LABETALOL [Concomitant]
     Active Substance: LABETALOL\LABETALOL HYDROCHLORIDE
     Indication: HYPERTENSION
     Dosage: 0.5 UNK, UNK (25 MG/ 5 ML/ AMP)
     Route: 042
     Dates: start: 20170529, end: 20170530
  52. VALSARTAN. [Concomitant]
     Active Substance: VALSARTAN
     Dosage: 80 MG, UNK
     Route: 048
     Dates: start: 20160406, end: 20160407
  53. BISACODYL. [Concomitant]
     Active Substance: BISACODYL
     Dosage: 20 MG, UNK
     Route: 054
     Dates: start: 20171112, end: 20171112
  54. ESTAZOLAM. [Concomitant]
     Active Substance: ESTAZOLAM
     Dosage: 2 MG, UNK
     Route: 048
     Dates: start: 20171123, end: 20171129
  55. FUROSEMIDE. [Concomitant]
     Active Substance: FUROSEMIDE
     Indication: HYPERTENSION
     Dosage: 20 MG, UNK
     Route: 031
     Dates: start: 20170528, end: 20170529
  56. INSULIN DETEMIR [Concomitant]
     Active Substance: INSULIN DETEMIR
     Dosage: 5 U, UNK
     Route: 058
     Dates: start: 20171020, end: 20171021
  57. INSULIN DETEMIR [Concomitant]
     Active Substance: INSULIN DETEMIR
     Dosage: 10 U, UNK
     Route: 058
     Dates: start: 20171021, end: 20171022
  58. INSULIN HUMAN ISOPHANE [Concomitant]
     Active Substance: INSULIN HUMAN
     Dosage: 4 U, UNK
     Route: 058
     Dates: start: 20171031, end: 20171031
  59. ISOSORBIDE-5-MONONITRATE [Concomitant]
     Active Substance: ISOSORBIDE MONONITRATE
     Dosage: 20 MG, UNK
     Route: 048
     Dates: start: 20171113, end: 20171117
  60. LOSARTAN. [Concomitant]
     Active Substance: LOSARTAN
     Dosage: 50 UNK, UNK
     Route: 048
     Dates: start: 20160921, end: 20171017
  61. NICARDIPINE [Concomitant]
     Active Substance: NICARDIPINE
     Indication: HYPERTENSION
     Dosage: 10 MG, (10 MG/ 10 ML) 0.1 MG
     Route: 042
     Dates: start: 20171012, end: 20171012
  62. REPAGLINIDE. [Concomitant]
     Active Substance: REPAGLINIDE
     Dosage: 0.5 MG, UNK
     Route: 048
     Dates: start: 20171207, end: 20171211
  63. SENNOSIDE [Concomitant]
     Active Substance: SENNOSIDES
     Indication: PROPHYLAXIS
     Dosage: 40 MG, UNK
     Route: 048
     Dates: start: 20171021, end: 20171021
  64. SODIUM CHLORIDE. [Concomitant]
     Active Substance: SODIUM CHLORIDE
     Indication: PRODUCT USED FOR UNKNOWN INDICATION
     Dosage: 500 ML, UNK
     Route: 042
     Dates: start: 20171016, end: 20171016
  65. TRAZODONE [Concomitant]
     Active Substance: TRAZODONE HYDROCHLORIDE
     Dosage: 50 MG, UNK
     Route: 048
     Dates: start: 20171211, end: 20171211
  66. TRIAMCINOLONE [Concomitant]
     Active Substance: TRIAMCINOLONE
     Indication: PROPHYLAXIS
     Dosage: 6 G, UNK
     Route: 061
     Dates: start: 20171031, end: 20171031
  67. ISOSORBIDE DINITRATE. [Concomitant]
     Active Substance: ISOSORBIDE DINITRATE
     Indication: MYOCARDIAL ISCHAEMIA
     Dosage: 5 MG, UNK
     Route: 048
     Dates: start: 20170418, end: 20171012
  68. BISACODYL. [Concomitant]
     Active Substance: BISACODYL
     Dosage: 20 MG, UNK
     Route: 054
     Dates: start: 20171126, end: 20171126
  69. CAPTOPRIL. [Concomitant]
     Active Substance: CAPTOPRIL
     Dosage: 25 MG, UNK
     Route: 048
     Dates: start: 20171203, end: 20171209
  70. CAPTOPRIL. [Concomitant]
     Active Substance: CAPTOPRIL
     Dosage: 25 MG, UNK
     Route: 048
     Dates: start: 20171209, end: 20171211
  71. DILTIAZEM. [Concomitant]
     Active Substance: DILTIAZEM
     Dosage: 30 UNK, UNK
     Route: 048
     Dates: start: 20160314, end: 20160406
  72. ESTAZOLAM. [Concomitant]
     Active Substance: ESTAZOLAM
     Indication: INSOMNIA
     Dosage: 2 MG, UNK
     Route: 048
     Dates: start: 20171012, end: 20171018
  73. ESTAZOLAM. [Concomitant]
     Active Substance: ESTAZOLAM
     Dosage: 2 MG, UNK
     Route: 048
     Dates: start: 20171205, end: 20171206
  74. EXFORGE HCT [Concomitant]
     Active Substance: AMLODIPINE BESYLATE\HYDROCHLOROTHIAZIDE\VALSARTAN
     Indication: HYPERTENSION
     Dosage: 12.5 MG, UNK
     Route: 048
     Dates: start: 20171017, end: 20171018
  75. FUROSEMIDE. [Concomitant]
     Active Substance: FUROSEMIDE
     Dosage: 20 MG, UNK
     Route: 031
     Dates: start: 20160404, end: 20160409
  76. GLUCOSE [Concomitant]
     Active Substance: DEXTROSE
     Dosage: 40 ML, UNK
     Route: 042
     Dates: start: 20171106, end: 20171106
  77. NORMAL SALINE [Concomitant]
     Active Substance: SODIUM CHLORIDE
     Indication: TYPE 2 DIABETES MELLITUS
     Dosage: 1000 ML, GLUCOSE 5%
     Route: 042
     Dates: start: 20171016, end: 20171016
  78. INSULIN DETEMIR [Concomitant]
     Active Substance: INSULIN DETEMIR
     Dosage: 10 U, UNK
     Route: 058
     Dates: start: 20171022, end: 20171022
  79. INSULIN DETEMIR [Concomitant]
     Active Substance: INSULIN DETEMIR
     Dosage: 14 U, UNK
     Route: 058
     Dates: start: 20171024, end: 20171024
  80. INSULIN HUMAN ISOPHANE [Concomitant]
     Active Substance: INSULIN HUMAN
     Dosage: 12 U, UNK
     Route: 058
     Dates: start: 20171026, end: 20171031
  81. ISOSORBIDE-5-MONONITRATE [Concomitant]
     Active Substance: ISOSORBIDE MONONITRATE
     Indication: ARRHYTHMIA
     Dosage: 20 MG, UNK
     Route: 048
     Dates: start: 20171109, end: 20171113
  82. ISOSORBIDE-5-MONONITRATE [Concomitant]
     Active Substance: ISOSORBIDE MONONITRATE
     Dosage: 20 MG, UNK
     Route: 048
     Dates: start: 20171117, end: 20171123
  83. METFORMIN [Concomitant]
     Active Substance: METFORMIN HYDROCHLORIDE
     Dosage: 500 MG, UNK
     Route: 048
     Dates: start: 20171206, end: 20171211
  84. INSULIN [Concomitant]
     Active Substance: INSULIN NOS
     Indication: TYPE 2 DIABETES MELLITUS
     Dosage: 4 U, UNK
     Route: 058
     Dates: start: 20171012, end: 20171012
  85. INSULIN [Concomitant]
     Active Substance: INSULIN NOS
     Dosage: 10 U, UNK
     Route: 058
     Dates: start: 20171111, end: 20171120
  86. INSULIN [Concomitant]
     Active Substance: INSULIN NOS
     Dosage: 6 U, UNK
     Route: 058
     Dates: start: 20171123, end: 20171130
  87. SODIUM CHLORIDE. [Concomitant]
     Active Substance: SODIUM CHLORIDE
     Dosage: 500 ML, UNK
     Route: 042
     Dates: start: 20171017, end: 20171017
  88. SODIUM CHLORIDE. [Concomitant]
     Active Substance: SODIUM CHLORIDE
     Dosage: 500 ML, UNK
     Route: 042
     Dates: start: 20171025, end: 20171025
  89. SODIUM CHLORIDE. [Concomitant]
     Active Substance: SODIUM CHLORIDE
     Dosage: 500 ML, UNK
     Route: 042
     Dates: start: 20171113, end: 20171113
  90. SODIUM CHLORIDE. [Concomitant]
     Active Substance: SODIUM CHLORIDE
     Dosage: 500 ML, UNK
     Route: 042
     Dates: start: 20171117, end: 20171117
  91. SODIUM CHLORIDE. [Concomitant]
     Active Substance: SODIUM CHLORIDE
     Dosage: 500 ML, UNK
     Route: 042
     Dates: start: 20171129, end: 20171129
  92. TRAZODONE [Concomitant]
     Active Substance: TRAZODONE HYDROCHLORIDE
     Dosage: 50 MG, UNK
     Route: 048
     Dates: start: 20171123, end: 20171129
  93. ALPRAZOLAMS [Concomitant]
     Indication: INSOMNIA
     Dosage: 0.25 MG, UNK
     Route: 048
     Dates: start: 20160303, end: 20161017
  94. MOSAPRIDE [Concomitant]
     Active Substance: MOSAPRIDE
     Indication: PROPHYLAXIS
     Dosage: 05 MG, UNK
     Route: 048
     Dates: start: 20160316, end: 20160318
  95. MOSAPRIDE [Concomitant]
     Active Substance: MOSAPRIDE
     Dosage: 05 MG, UNK
     Route: 048
     Dates: start: 20160323, end: 20160324
  96. DOXAZOSIN [Concomitant]
     Active Substance: DOXAZOSIN MESYLATE
     Indication: HYPERTENSION
     Dosage: 4 MG, UNK
     Route: 048
     Dates: end: 20160407
  97. BISACODYL. [Concomitant]
     Active Substance: BISACODYL
     Indication: PROPHYLAXIS
     Dosage: 10 MG, UNK
     Route: 054
     Dates: start: 20171019, end: 20171019
  98. DILTIAZEM. [Concomitant]
     Active Substance: DILTIAZEM
     Dosage: 30 MG, UNK
     Route: 048
     Dates: start: 20171023, end: 20171023
  99. EXFORGE HCT [Concomitant]
     Active Substance: AMLODIPINE BESYLATE\HYDROCHLOROTHIAZIDE\VALSARTAN
     Dosage: 12.5 MG, UNK
     Route: 048
     Dates: start: 20171209, end: 20171209
  100. EXFORGE [Concomitant]
     Active Substance: AMLODIPINE BESYLATE\VALSARTAN
     Indication: HYPERTENSION
     Dosage: 1 DF, UNK
     Route: 048
     Dates: start: 20171129, end: 20171205
  101. EXFORGE [Concomitant]
     Active Substance: AMLODIPINE BESYLATE\VALSARTAN
     Dosage: 1 DF, UNK
     Route: 048
     Dates: start: 20171211, end: 20171211
  102. FUROSEMIDE. [Concomitant]
     Active Substance: FUROSEMIDE
     Dosage: 20 MG, UNK
     Route: 042
     Dates: start: 20171108, end: 20171113
  103. INSULIN DETEMIR [Concomitant]
     Active Substance: INSULIN DETEMIR
     Dosage: 4 U, UNK
     Route: 058
     Dates: start: 20171019, end: 20171020
  104. INSULIN DETEMIR [Concomitant]
     Active Substance: INSULIN DETEMIR
     Dosage: 14 U, UNK
     Route: 058
     Dates: start: 20171023, end: 20171023
  105. INSULIN DETEMIR [Concomitant]
     Active Substance: INSULIN DETEMIR
     Dosage: 14 U, UNK
     Route: 058
     Dates: start: 20171023, end: 20171024
  106. INSULIN HUMAN ISOPHANE [Concomitant]
     Active Substance: INSULIN HUMAN
     Indication: TYPE 2 DIABETES MELLITUS
     Dosage: 8 U, UNK
     Route: 058
     Dates: start: 20171025, end: 20171026
  107. LIDOCAINE. [Concomitant]
     Active Substance: LIDOCAINE
     Indication: PROPHYLAXIS
     Dosage: 20 ML, UNK
     Route: 061
     Dates: start: 20171020, end: 20171020
  108. LOSARTAN. [Concomitant]
     Active Substance: LOSARTAN
     Indication: HYPERTENSION
     Dosage: 50 MG, UNK
     Route: 048
     Dates: start: 20171012, end: 20171017
  109. REPAGLINIDE. [Concomitant]
     Active Substance: REPAGLINIDE
     Dosage: 0.5 MG, UNK
     Route: 048
     Dates: start: 20171211, end: 20171211
  110. SENNOSIDE [Concomitant]
     Active Substance: SENNOSIDES
     Dosage: 40 MG, UNK
     Route: 048
     Dates: start: 20171021, end: 20171027
  111. SENNOSIDE [Concomitant]
     Active Substance: SENNOSIDES
     Dosage: 40 UNK, UNK
     Route: 048
     Dates: start: 20160418, end: 20171211
  112. SODIUM CHLORIDE. [Concomitant]
     Active Substance: SODIUM CHLORIDE
     Dosage: 500 ML, UNK
     Route: 042
     Dates: start: 20171127, end: 20171127
  113. TRAZODONE [Concomitant]
     Active Substance: TRAZODONE HYDROCHLORIDE
     Dosage: 50 MG, UNK
     Route: 048
     Dates: start: 20171117, end: 20171123
  114. ALPRAZOLAMS [Concomitant]
     Dosage: 0.25 MG, UNK
     Route: 048
     Dates: start: 20160323, end: 20160329
  115. PREDNISOLONE. [Concomitant]
     Active Substance: PREDNISOLONE
     Indication: BRONCHITIS
     Dosage: 05 MG, UNK
     Route: 048
     Dates: start: 20160323, end: 20160325
  116. SPIRONOLACTONE. [Concomitant]
     Active Substance: SPIRONOLACTONE
     Dosage: 50 MG, UNK
     Route: 048
     Dates: start: 20160407, end: 20160409
  117. DOXAZOSIN [Concomitant]
     Active Substance: DOXAZOSIN MESYLATE
     Dosage: 4 MG, UNK
     Route: 048
  118. LACIDIPINE [Concomitant]
     Active Substance: LACIDIPINE
     Indication: HYPERTENSION
     Dosage: 4 MG, UNK
     Route: 048
     Dates: end: 20160407
  119. VALSARTAN. [Concomitant]
     Active Substance: VALSARTAN
     Indication: HYPERTENSION
     Dosage: 160 MG, UNK
     Route: 048
     Dates: start: 20160329, end: 20160405
  120. BISACODYL. [Concomitant]
     Active Substance: BISACODYL
     Dosage: 20 MG, UNK
     Route: 054
     Dates: start: 20171106, end: 20171106
  121. BISACODYL. [Concomitant]
     Active Substance: BISACODYL
     Dosage: 20 MG, UNK
     Route: 054
     Dates: start: 20171116, end: 20171116
  122. CAPTOPRIL. [Concomitant]
     Active Substance: CAPTOPRIL
     Dosage: 12.5 MG, UNK
     Route: 048
     Dates: start: 20171123, end: 20171129
  123. CAPTOPRIL. [Concomitant]
     Active Substance: CAPTOPRIL
     Dosage: 25 MG, UNK
     Route: 048
     Dates: start: 20171211, end: 20171211
  124. COMBIVENT [Concomitant]
     Active Substance: ALBUTEROL SULFATE\IPRATROPIUM BROMIDE
     Indication: COUGH
     Dosage: 2.5 ML, UNK
     Route: 055
     Dates: start: 20171012, end: 20171015
  125. COMBIVENT [Concomitant]
     Active Substance: ALBUTEROL SULFATE\IPRATROPIUM BROMIDE
     Indication: PRODUCTIVE COUGH
     Dosage: 2.5 ML, UNK
     Route: 055
     Dates: start: 20171015, end: 20171016
  126. ESTAZOLAM. [Concomitant]
     Active Substance: ESTAZOLAM
     Dosage: 2 MG, UNK
     Route: 048
     Dates: start: 20171129, end: 20171205
  127. FUROSEMIDE. [Concomitant]
     Active Substance: FUROSEMIDE
     Dosage: 20 MG, UNK
     Route: 042
     Dates: start: 20171117, end: 20171123
  128. GLUCOSE [Concomitant]
     Active Substance: DEXTROSE
     Indication: TYPE 2 DIABETES MELLITUS
     Dosage: 40 ML, UNK (20ML )
     Route: 042
     Dates: start: 20171016, end: 20171016
  129. NORMAL SALINE [Concomitant]
     Active Substance: SODIUM CHLORIDE
     Dosage: 500 ML, GLUCOSE 5%
     Route: 042
     Dates: start: 20171016, end: 20171016
  130. IOHEXOL [Concomitant]
     Active Substance: IOHEXOL
     Indication: COMPUTERISED TOMOGRAM
     Dosage: 525 MG, UNK
     Route: 042
     Dates: start: 20171016, end: 20171016
  131. NICORANDIL [Concomitant]
     Active Substance: NICORANDIL
     Indication: HYPERTENSION
     Dosage: 5 MG, UNK
     Route: 048
     Dates: start: 20171018, end: 20171024
  132. NICORANDIL [Concomitant]
     Active Substance: NICORANDIL
     Dosage: 5 MG, UNK
     Route: 048
     Dates: start: 20171115, end: 20171115
  133. INSULIN [Concomitant]
     Active Substance: INSULIN NOS
     Dosage: 4 U, UNK
     Route: 058
     Dates: start: 20171031, end: 20171031
  134. INSULIN [Concomitant]
     Active Substance: INSULIN NOS
     Dosage: 8 U, UNK
     Route: 058
     Dates: start: 20171211, end: 20171211
  135. TRAZODONE [Concomitant]
     Active Substance: TRAZODONE HYDROCHLORIDE
     Indication: INSOMNIA
     Dosage: 50 MG, UNK
     Route: 048
     Dates: start: 20171114, end: 20171117
  136. TRAZODONE [Concomitant]
     Active Substance: TRAZODONE HYDROCHLORIDE
     Dosage: 50 MG, UNK
     Route: 048
     Dates: start: 20171129, end: 20171205
  137. ETORICOXIB. [Concomitant]
     Active Substance: ETORICOXIB
     Indication: BACK PAIN
     Dosage: 60 MG, UNK
     Route: 048
     Dates: start: 20160310, end: 20160407
  138. LORAZEPAM. [Concomitant]
     Active Substance: LORAZEPAM
     Indication: INSOMNIA
     Dosage: 0.5 MG, UNK
     Route: 048
     Dates: start: 20160325, end: 20160405
  139. ULTRACET [Concomitant]
     Active Substance: ACETAMINOPHEN\TRAMADOL HYDROCHLORIDE
     Indication: BACK PAIN
     Dosage: 1 DF, UNK
     Route: 048
     Dates: end: 20160310
  140. ISOSORBIDE DINITRATE. [Concomitant]
     Active Substance: ISOSORBIDE DINITRATE
     Dosage: 20 MG, UNK
     Route: 048
     Dates: start: 20171109, end: 20171212
  141. PROPRANOLOL [Concomitant]
     Active Substance: PROPRANOLOL HYDROCHLORIDE
     Indication: ARRHYTHMIA
     Dosage: 5 MG, UNK
     Route: 048
     Dates: end: 20160404
  142. WARFARIN [Concomitant]
     Active Substance: WARFARIN
     Indication: PROPHYLAXIS
     Dosage: 2.5 MG, UNK
     Route: 048
     Dates: end: 20171017
  143. CAPTOPRIL. [Concomitant]
     Active Substance: CAPTOPRIL
     Indication: ARRHYTHMIA
     Dosage: 25 MG, UNK
     Route: 048
     Dates: start: 20171017, end: 20171017
  144. CAPTOPRIL. [Concomitant]
     Active Substance: CAPTOPRIL
     Dosage: 25 MG, UNK
     Route: 048
     Dates: start: 20171106, end: 20171106
  145. CAPTOPRIL. [Concomitant]
     Active Substance: CAPTOPRIL
     Dosage: 12.5 MG, UNK
     Route: 048
     Dates: start: 20171129, end: 20171203
  146. NORMAL SALINE [Concomitant]
     Active Substance: SODIUM CHLORIDE
     Dosage: 500 ML, GLUCOSE 5%
     Route: 042
     Dates: start: 20171018, end: 20171019
  147. NICORANDIL [Concomitant]
     Active Substance: NICORANDIL
     Dosage: 5 MG, UNK
     Route: 048
     Dates: start: 20171024, end: 20171030
  148. NICORANDIL [Concomitant]
     Active Substance: NICORANDIL
     Dosage: 5 MG, UNK
     Route: 048
     Dates: start: 20171030, end: 20171106
  149. NICORANDIL [Concomitant]
     Active Substance: NICORANDIL
     Dosage: 5 MG, UNK
     Route: 048
     Dates: start: 20171106, end: 20171112
  150. NICORANDIL [Concomitant]
     Active Substance: NICORANDIL
     Dosage: 5 MG, UNK
     Route: 048
     Dates: start: 20171211, end: 20171211
  151. INSULIN [Concomitant]
     Active Substance: INSULIN NOS
     Dosage: 4 U, UNK
     Route: 058
     Dates: start: 20171026, end: 20171031
  152. INSULIN [Concomitant]
     Active Substance: INSULIN NOS
     Dosage: 4 U, UNK
     Route: 058
     Dates: start: 20171210, end: 20171210
  153. SENNOSIDE [Concomitant]
     Active Substance: SENNOSIDES
     Dosage: 40 MG, UNK
     Route: 048
     Dates: start: 20171211, end: 20171211
  154. SODIUM CHLORIDE. [Concomitant]
     Active Substance: SODIUM CHLORIDE
     Dosage: 500 ML, UNK
     Route: 042
     Dates: start: 20171022, end: 20171022
  155. SODIUM CHLORIDE. [Concomitant]
     Active Substance: SODIUM CHLORIDE
     Dosage: 500 ML, UNK
     Route: 042
     Dates: start: 20171123, end: 20171123
  156. SODIUM CHLORIDE. [Concomitant]
     Active Substance: SODIUM CHLORIDE
     Dosage: 500 ML, UNK
     Route: 042
     Dates: start: 20171128, end: 20171128
  157. ALPRAZOLAMS [Concomitant]
     Dosage: 0.5 MG, UNK
     Route: 048
     Dates: start: 20170721, end: 20171116
  158. BENZONATATE. [Concomitant]
     Active Substance: BENZONATATE
     Indication: PRODUCTIVE COUGH
  159. DEXTROMETHORPHAN [Concomitant]
     Active Substance: DEXTROMETHORPHAN
     Indication: PROPHYLAXIS
     Dosage: 30 MG, UNK
     Route: 048
     Dates: start: 20160323, end: 20160405
  160. TASIGNA [Suspect]
     Active Substance: NILOTINIB
     Indication: CHRONIC MYELOID LEUKAEMIA
     Dosage: 600 UNK, UNK
     Route: 048
     Dates: start: 20160302, end: 20160308
  161. AMLODIPINE BESYLATE. [Concomitant]
     Active Substance: AMLODIPINE BESYLATE
     Dosage: 5 MG, UNK
     Route: 048
     Dates: start: 20171123, end: 20171129
  162. AMLODIPINE BESYLATE. [Concomitant]
     Active Substance: AMLODIPINE BESYLATE
     Dosage: 5 MG, UNK
     Route: 048
     Dates: start: 20171129, end: 20171129
  163. BISACODYL. [Concomitant]
     Active Substance: BISACODYL
     Dosage: 20 MG, UNK
     Route: 054
     Dates: start: 20171204, end: 20171204
  164. CAPTOPRIL. [Concomitant]
     Active Substance: CAPTOPRIL
     Dosage: 25 MG, UNK
     Route: 048
     Dates: start: 20171028, end: 20171028
  165. DILTIAZEM. [Concomitant]
     Active Substance: DILTIAZEM
     Indication: HYPERTENSION
     Dosage: 30 MG, UNK
     Route: 048
     Dates: start: 20171012, end: 20171012
  166. EXFORGE [Concomitant]
     Active Substance: AMLODIPINE BESYLATE\VALSARTAN
     Dosage: 1 DF, UNK
     Route: 048
     Dates: start: 20171205, end: 20171211
  167. FUROSEMIDE. [Concomitant]
     Active Substance: FUROSEMIDE
     Dosage: 20 MG, UNK
     Route: 031
     Dates: start: 20160325, end: 20160325
  168. GLUCOSE [Concomitant]
     Active Substance: DEXTROSE
     Dosage: 40 ML, UNK
     Route: 042
     Dates: start: 20171111, end: 20171111
  169. GLUCOSE [Concomitant]
     Active Substance: DEXTROSE
     Dosage: 40 ML, UNK
     Route: 042
     Dates: start: 20171122, end: 20171122
  170. ISOSORBIDE-5-MONONITRATE [Concomitant]
     Active Substance: ISOSORBIDE MONONITRATE
     Dosage: 20 MG, UNK
     Route: 048
     Dates: start: 20171129, end: 20171205
  171. ISOSORBIDE-5-MONONITRATE [Concomitant]
     Active Substance: ISOSORBIDE MONONITRATE
     Dosage: 20 MG, UNK
     Route: 048
     Dates: start: 20171211, end: 20171211
  172. MAGNESIUM OXIDE. [Concomitant]
     Active Substance: MAGNESIUM OXIDE
     Indication: PROPHYLAXIS
     Dosage: 250 MG, UNK
     Route: 048
     Dates: start: 20171012, end: 20171016
  173. NICORANDIL [Concomitant]
     Active Substance: NICORANDIL
     Dosage: 5 MG, UNK
     Route: 048
     Dates: start: 20171112, end: 20171117
  174. NICORANDIL [Concomitant]
     Active Substance: NICORANDIL
     Dosage: 5 MG, UNK
     Route: 048
     Dates: start: 20171123, end: 20171129
  175. NICORANDIL [Concomitant]
     Active Substance: NICORANDIL
     Dosage: 5 MG, UNK
     Route: 048
     Dates: start: 20171123, end: 20171129
  176. NICORANDIL [Concomitant]
     Active Substance: NICORANDIL
     Dosage: 5 MG, UNK
     Route: 048
     Dates: start: 20171205, end: 20171211
  177. INSULIN [Concomitant]
     Active Substance: INSULIN NOS
     Dosage: 10 U, UNK
     Route: 058
     Dates: start: 20171105, end: 20171111
  178. INSULIN [Concomitant]
     Active Substance: INSULIN NOS
     Dosage: 8 U, UNK
     Route: 058
     Dates: start: 20171122, end: 20171123
  179. REPAGLINIDE. [Concomitant]
     Active Substance: REPAGLINIDE
     Dosage: 0.5 MG, UNK
     Route: 048
     Dates: start: 20171201, end: 20171207
  180. TRICHLORMETHIAZIDE [Concomitant]
     Active Substance: TRICHLORMETHIAZIDE
     Dosage: 2 UNK, UNK
     Route: 048
     Dates: start: 20170531, end: 20171017
  181. AUGMENTIN [Concomitant]
     Active Substance: AMOXICILLIN\CLAVULANATE POTASSIUM
     Indication: COUGH
     Dosage: 1 G, UNK
     Route: 048
     Dates: start: 20160308, end: 20160323
  182. BENZONATATE. [Concomitant]
     Active Substance: BENZONATATE
     Indication: COUGH
     Dosage: 100 MG, UNK
     Route: 048
     Dates: start: 20160308, end: 20160325
  183. CELECOXIB. [Concomitant]
     Active Substance: CELECOXIB
     Indication: BACK PAIN
     Dosage: 200 MG, UNK
     Route: 048
     Dates: start: 20160309, end: 20160310
  184. DECLOFENAC [Concomitant]
     Active Substance: DICLOFENAC SODIUM
     Indication: BACK PAIN
     Dosage: UNK
     Route: 061
     Dates: start: 20160921, end: 20170912
  185. NYSTATIN. [Concomitant]
     Active Substance: NYSTATIN
     Indication: PROPHYLAXIS
     Dosage: 500000 U, UNK
     Route: 049
     Dates: start: 20160329, end: 20160407
  186. SPIRONOLACTONE. [Concomitant]
     Active Substance: SPIRONOLACTONE
     Dosage: 25 MG, UNK
     Route: 048
     Dates: start: 20160418, end: 20160629

REACTIONS (1)
  - Dementia [Not Recovered/Not Resolved]

NARRATIVE: CASE EVENT DATE: 20161214
